FAERS Safety Report 4398927-2 (Version None)
Quarter: 2004Q3

REPORT INFORMATION
  Report Type: 
  Country: None (occurrence: None)
  Receive Date: 20040712
  Receipt Date: 20040621
  Transmission Date: 20050211
  Serious: Yes (Hospitalization)
  Sender: FDA-Public Use
  Company Number: WAES 0310FIN00006

PATIENT
  Age: 72 Year
  Sex: Female

DRUGS (5)
  1. VIOXX [Suspect]
     Indication: POST PROCEDURAL PAIN
     Dosage: 50 MG/DAILY, PO
     Route: 048
     Dates: start: 20030801, end: 20030825
  2. IBUPROFEN [Suspect]
     Indication: POST PROCEDURAL PAIN
     Dosage: 1000 MG/DAILY, PO
     Route: 048
     Dates: start: 20030801, end: 20030825
  3. AMLODIPINE BESYLATE [Concomitant]
  4. HYDROCHLOROTHIAZIDE [Concomitant]
  5. VALSARTAN [Concomitant]

REACTIONS (4)
  - BLOOD CREATININE INCREASED [None]
  - DIZZINESS [None]
  - VERTIGO [None]
  - VOMITING [None]
